FAERS Safety Report 6111003-3 (Version None)
Quarter: 2009Q1

REPORT INFORMATION
  Report Type: 
  Country: None (occurrence: None)
  Receive Date: 20090311
  Receipt Date: 20090302
  Transmission Date: 20090719
  Serious: Yes (Other)
  Sender: FDA-Public Use
  Company Number: US-BAYER-200914435NA

PATIENT
  Age: 66 Year
  Sex: Male

DRUGS (6)
  1. CAMPATH [Suspect]
     Indication: CHRONIC LYMPHOCYTIC LEUKAEMIA
     Dates: start: 20090201, end: 20090227
  2. CAMPATH [Suspect]
     Dates: start: 20090302
  3. TYLENOL [Concomitant]
     Indication: PREMEDICATION
  4. BENADRYL [Concomitant]
     Indication: PREMEDICATION
  5. FAMVIR [Concomitant]
     Indication: INFECTION PROPHYLAXIS
  6. BACTRIM [Concomitant]
     Indication: INFECTION PROPHYLAXIS

REACTIONS (4)
  - CYTOMEGALOVIRUS TEST POSITIVE [None]
  - DEEP VEIN THROMBOSIS [None]
  - PLEURAL EFFUSION [None]
  - WHITE BLOOD CELL COUNT INCREASED [None]
